FAERS Safety Report 6637336-X (Version None)
Quarter: 2010Q1

REPORT INFORMATION
  Report Type: 
  Country: None (occurrence: None)
  Receive Date: 20100311
  Receipt Date: 20100223
  Transmission Date: 20100710
  Serious: Yes (Hospitalization)
  Sender: FDA-Public Use
  Company Number: 003575

PATIENT
  Sex: Female

DRUGS (12)
  1. CERTOLIZUMAB PEGOL (CERTOLIZUMAB PEGOL) [Suspect]
     Indication: RHEUMATOID ARTHRITIS
     Dosage: (SUBCUTANEOUS)
     Route: 058
     Dates: start: 20091013, end: 20091218
  2. REBAMIPIDE [Concomitant]
  3. PREDNISOLONE [Concomitant]
  4. ETODOLAC [Concomitant]
  5. ALENDRONATE SODIUM [Concomitant]
  6. METHOTREXATE [Concomitant]
  7. FOLIC ACID [Concomitant]
  8. RABEPRAZOLE SODIUM [Concomitant]
  9. ISONIAZID [Concomitant]
  10. PYRIDOXAL PHOSPHATE [Concomitant]
  11. NIFEDIPINE [Concomitant]
  12. MAGNESIUM OXIDE [Concomitant]

REACTIONS (12)
  - ABDOMINAL PAIN UPPER [None]
  - ACUTE MYOCARDIAL INFARCTION [None]
  - ARTERIOSPASM CORONARY [None]
  - ASTHENIA [None]
  - CHEST PAIN [None]
  - CHILLS [None]
  - CORONARY ARTERY STENOSIS [None]
  - NAUSEA [None]
  - PLEURAL EFFUSION [None]
  - PNEUMONIA BACTERIAL [None]
  - PNEUMONIA MYCOPLASMAL [None]
  - VOMITING [None]
